FAERS Safety Report 7594223-0 (Version None)
Quarter: 2011Q3

REPORT INFORMATION
  Report Type: 
  Country: None (occurrence: None)
  Receive Date: 20110706
  Receipt Date: 20110627
  Transmission Date: 20111222
  Serious: Yes (Hospitalization)
  Sender: FDA-Public Use
  Company Number: US-ASTRAZENECA-2011SE38723

PATIENT
  Age: 86 Year
  Sex: Female
  Weight: 47.6 kg

DRUGS (1)
  1. NEXIUM [Suspect]
     Route: 048

REACTIONS (2)
  - CARDIAC FAILURE CONGESTIVE [None]
  - PNEUMONIA [None]
